FAERS Safety Report 5198919-X (Version None)
Quarter: 2006Q4

REPORT INFORMATION
  Report Type: 
  Country: None (occurrence: None)
  Receive Date: 20060925
  Receipt Date: 20060131
  Transmission Date: 20070319
  Serious: Yes (Other)
  Sender: FDA-Public Use
  Company Number: US-JNJFOC-20060200470

PATIENT
  Age: 12 Year
  Sex: Male
  Weight: 45.3597 kg

DRUGS (2)
  1. CONCERTA [Suspect]
     Indication: ATTENTION DEFICIT/HYPERACTIVITY DISORDER
     Dosage: 54 MG, 1 IN 1 DAY
     Dates: end: 20050101
  2. RISPERDAL [Suspect]
     Indication: DRUG USE FOR UNKNOWN INDICATION

REACTIONS (3)
  - ANGER [None]
  - ANOREXIA [None]
  - PETIT MAL EPILEPSY [None]
